FAERS Safety Report 9684857 (Version 1)
Quarter: 2013Q4

REPORT INFORMATION
  Report Type: Spontaneous
  Country: US (occurrence: US)
  Receive Date: 20131112
  Receipt Date: 20131112
  Transmission Date: 20140711
  Serious: Yes (Death, Other)
  Sender: FDA-Public Use
  Company Number: US-ROCHE-1302691

PATIENT
  Age: 74 Year
  Sex: Female

DRUGS (1)
  1. ZELBORAF [Suspect]
     Indication: MALIGNANT MELANOMA
     Dosage: FREQUENCY: 960MG BID
     Route: 048
     Dates: start: 20131022, end: 20131105

REACTIONS (2)
  - Death [Fatal]
  - Renal failure [Unknown]
